FAERS Safety Report 6759696-1 (Version None)
Quarter: 2010Q2

REPORT INFORMATION
  Report Type: 
  Country: None (occurrence: None)
  Receive Date: 20100604
  Receipt Date: 20100514
  Transmission Date: 20101027
  Serious: Yes (Other)
  Sender: FDA-Public Use
  Company Number: 2010US001701

PATIENT
  Sex: Male

DRUGS (2)
  1. AMBISOME [Suspect]
     Indication: CRYPTOCOCCOSIS
  2. FLUCYTOSINE [Suspect]
     Indication: CRYPTOCOCCOSIS

REACTIONS (1)
  - PANCYTOPENIA [None]
